FAERS Safety Report 9101255 (Version 3)
Quarter: 2019Q4

REPORT INFORMATION
  Report Type: Spontaneous
  Country: US (occurrence: US)
  Receive Date: 20130215
  Receipt Date: 20191119
  Transmission Date: 20200122
  Serious: Yes (Hospitalization, Other)
  Sender: FDA-Public Use
  Company Number: US-PFIZER INC-2013059191

PATIENT
  Age: 56 Year
  Sex: Female
  Weight: 71 kg

DRUGS (11)
  1. LYRICA [Suspect]
     Active Substance: PREGABALIN
     Dosage: 75 MG, 2X/DAY
  2. ADVIL PM [DIPHENHYDRAMINE HYDROCHLORIDE;IBUPROFEN] [Concomitant]
     Dosage: UNK UNK, AS NEEDED
  3. LYRICA [Suspect]
     Active Substance: PREGABALIN
     Indication: FIBROMYALGIA
     Dosage: 50 MG, 2X/DAY
     Route: 048
  4. TELMISARTAN. [Concomitant]
     Active Substance: TELMISARTAN
     Dosage: 40 MG, UNK
  5. ATORVASTATIN [Concomitant]
     Active Substance: ATORVASTATIN
     Dosage: 20 MG, UNK
  6. UNISOM [DOXYLAMINE SUCCINATE] [Concomitant]
     Dosage: UNK, 1X/DAY (AT NIGHT)
  7. MEGARED JOINT CARE [Concomitant]
     Dosage: UNK, 1X/DAY
  8. TRAMADOL. [Concomitant]
     Active Substance: TRAMADOL
     Dosage: 50 MG, 3X/DAY [OVER 10 YEARS]
  9. AMLODIPINE [Concomitant]
     Active Substance: AMLODIPINE BESYLATE
     Dosage: 5 MG, 1X/DAY [OVER 10 YEARS]
  10. ADVIL [IBUPROFEN] [Concomitant]
     Active Substance: IBUPROFEN
     Dosage: UNK, AS NEEDED
  11. RANITIDINE. [Concomitant]
     Active Substance: RANITIDINE
     Dosage: 150 MG, 2X/DAY

REACTIONS (10)
  - Feeling hot [Not Recovered/Not Resolved]
  - Feeling cold [Recovering/Resolving]
  - Peripheral coldness [Recovering/Resolving]
  - Blood cholesterol increased [Recovered/Resolved]
  - Cardiac disorder [Recovering/Resolving]
  - Paraesthesia [Not Recovered/Not Resolved]
  - Hot flush [Not Recovered/Not Resolved]
  - Memory impairment [Unknown]
  - Hypertension [Recovered/Resolved]
  - Pain [Not Recovered/Not Resolved]

NARRATIVE: CASE EVENT DATE: 201211
